FAERS Safety Report 5330923-0 (Version None)
Quarter: 2007Q2

REPORT INFORMATION
  Report Type: 
  Country: None (occurrence: None)
  Receive Date: 20070517
  Receipt Date: 20070508
  Transmission Date: 20071010
  Serious: Yes (Hospitalization)
  Sender: FDA-Public Use
  Company Number: 2007-02262

PATIENT
  Age: 65 Year
  Sex: Female

DRUGS (4)
  1. FENTANYL CITRATE [Suspect]
     Indication: PERIOPERATIVE ANALGESIA
     Dosage: 100 UG, X 2 DOSES, INTRAVENOUS
     Route: 042
     Dates: start: 20070101
  2. FENTANYL CITRATE [Suspect]
     Indication: SEDATIVE THERAPY
     Dosage: 100 UG, X 2 DOSES, INTRAVENOUS
     Route: 042
     Dates: start: 20070101
  3. PROPOFOL [Suspect]
     Indication: PERIOPERATIVE ANALGESIA
     Dosage: SEE IMAGE
     Route: 042
     Dates: start: 20070101
  4. PROPOFOL [Suspect]
     Indication: SEDATIVE THERAPY
     Dosage: SEE IMAGE
     Route: 042
     Dates: start: 20070101

REACTIONS (1)
  - PNEUMONIA ASPIRATION [None]
